FAERS Safety Report 25301443 (Version 1)
Quarter: 2025Q2

REPORT INFORMATION
  Report Type: Spontaneous
  Country: US (occurrence: US)
  Receive Date: 20250512
  Receipt Date: 20250512
  Transmission Date: 20250717
  Serious: No
  Sender: UCB
  Company Number: US-UCBSA-2024047875

PATIENT
  Age: 39 Year
  Sex: Female

DRUGS (1)
  1. CIMZIA [Suspect]
     Active Substance: CERTOLIZUMAB PEGOL
     Indication: Psoriatic arthropathy
     Dosage: 200 MILLIGRAM, EV 2 WEEKS(QOW)
     Route: 058

REACTIONS (10)
  - Urticaria [Unknown]
  - Burning sensation [Not Recovered/Not Resolved]
  - Injection site pain [Unknown]
  - SARS-CoV-2 test positive [Recovered/Resolved]
  - Dizziness [Unknown]
  - Musculoskeletal stiffness [Unknown]
  - Contusion [Unknown]
  - Inflammatory marker increased [Unknown]
  - Fall [Unknown]
  - Drug ineffective [Unknown]

NARRATIVE: CASE EVENT DATE: 20240917
